FAERS Safety Report 7273486-5 (Version None)
Quarter: 2011Q1

REPORT INFORMATION
  Report Type: 
  Country: None (occurrence: None)
  Receive Date: 20110203
  Receipt Date: 20110128
  Transmission Date: 20110831
  Serious: Yes (Death, Other)
  Sender: FDA-Public Use
  Company Number: US-ELI_LILLY_AND_COMPANY-US201101007519

PATIENT
  Age: 48 Year
  Sex: Male

DRUGS (3)
  1. LISDEXAMFETAMINE [Concomitant]
     Dosage: 70 MG, DAILY (1/D)
     Dates: start: 20110115, end: 20110117
  2. CYMBALTA [Suspect]
     Indication: DEPRESSION
     Dosage: 80 MG, DAILY (1/D)
     Dates: end: 20110117
  3. SIMVASTATIN [Concomitant]
     Indication: HYPERCHOLESTEROLAEMIA
     Dates: end: 20110117

REACTIONS (3)
  - VENTRICULAR HYPERTROPHY [None]
  - ACUTE MYOCARDIAL INFARCTION [None]
  - ARTERIOSCLEROSIS [None]
